FAERS Safety Report 4554649-6 (Version None)
Quarter: 2005Q1

REPORT INFORMATION
  Report Type: 
  Country: None (occurrence: None)
  Receive Date: 20050118
  Receipt Date: 20050112
  Transmission Date: 20050727
  Serious: Yes (Hospitalization)
  Sender: FDA-Public Use
  Company Number: PHEH2005US00819

PATIENT
  Age: 38 Year
  Sex: Female

DRUGS (4)
  1. DEPAKOTE [Suspect]
     Indication: AGGRESSION
     Dates: start: 20050109
  2. ABILIFY [Concomitant]
  3. LEXAPRO [Concomitant]
  4. CLOZARIL [Suspect]
     Indication: SCHIZOAFFECTIVE DISORDER
     Dosage: 350 MG, QHS
     Route: 048
     Dates: end: 20050110

REACTIONS (4)
  - AGGRESSION [None]
  - NASOPHARYNGITIS [None]
  - NEUTROPENIA [None]
  - WHITE BLOOD CELL COUNT DECREASED [None]
